FAERS Safety Report 15659576 (Version 7)
Quarter: 2023Q4

REPORT INFORMATION
  Report Type: Spontaneous
  Country: GB (occurrence: GB)
  Receive Date: 20181127
  Receipt Date: 20231024
  Transmission Date: 20240109
  Serious: Yes (Death, Other)
  Sender: FDA-Public Use
  Company Number: GB-CUBIST PHARMACEUTICALS, INC.-2008S1000214

PATIENT
  Age: 22 Year
  Sex: Female

DRUGS (23)
  1. CUBICIN [Suspect]
     Active Substance: DAPTOMYCIN
     Indication: Enterococcal sepsis
     Dosage: 350 MG, Q48H
     Route: 042
     Dates: start: 20080609, end: 20080618
  2. CUBICIN [Suspect]
     Active Substance: DAPTOMYCIN
     Indication: Haemorrhage
     Dosage: 350 MILLIGRAM, QOD
     Route: 041
     Dates: start: 20080609
  3. CUBICIN [Suspect]
     Active Substance: DAPTOMYCIN
     Indication: Aplastic anaemia
     Dosage: 350 MG, 10 QD (ALTERNATE DAY)
     Route: 042
  4. CUBICIN [Suspect]
     Active Substance: DAPTOMYCIN
     Indication: Neutropenic sepsis
     Dosage: 350 MG, Q48H
     Route: 042
     Dates: start: 20080609
  5. CUBICIN [Suspect]
     Active Substance: DAPTOMYCIN
     Indication: Fungal infection
  6. MEROPENEM [Suspect]
     Active Substance: MEROPENEM
     Indication: Neutropenic sepsis
     Dosage: 1 GRAM, BID
     Route: 042
     Dates: start: 20080529, end: 20080618
  7. MEROPENEM [Suspect]
     Active Substance: MEROPENEM
     Indication: Enterococcal infection
  8. MEROPENEM [Suspect]
     Active Substance: MEROPENEM
     Indication: Aplastic anaemia
  9. MEROPENEM [Suspect]
     Active Substance: MEROPENEM
     Indication: Fungal infection
  10. MEROPENEM [Suspect]
     Active Substance: MEROPENEM
     Indication: Haemorrhage
  11. CYCLOSPORINE [Suspect]
     Active Substance: CYCLOSPORINE
     Indication: Aplastic anaemia
     Dosage: UNK
     Route: 065
     Dates: start: 200805
  12. CYCLOSPORINE [Suspect]
     Active Substance: CYCLOSPORINE
     Indication: Enterococcal infection
  13. CYCLOSPORINE [Suspect]
     Active Substance: CYCLOSPORINE
     Indication: Fungal infection
  14. CYCLOSPORINE [Suspect]
     Active Substance: CYCLOSPORINE
     Indication: Haemorrhage
  15. CYCLOSPORINE [Suspect]
     Active Substance: CYCLOSPORINE
     Indication: Neutropenic sepsis
  16. CANCIDAS [Concomitant]
     Active Substance: CASPOFUNGIN ACETATE
     Dosage: 35 MILLIGRAM
     Route: 065
     Dates: start: 200805
  17. CANCIDAS [Concomitant]
     Active Substance: CASPOFUNGIN ACETATE
     Dosage: 35 MILLIGRAM, QD
     Route: 042
     Dates: start: 200805
  18. LEVETIRACETAM [Concomitant]
     Active Substance: LEVETIRACETAM
     Indication: Product used for unknown indication
     Dosage: UNK
     Route: 065
  19. THIOPENTAL SODIUM [Concomitant]
     Active Substance: THIOPENTAL SODIUM
     Indication: Product used for unknown indication
     Route: 065
  20. TRANEXAMIC ACID [Concomitant]
     Active Substance: TRANEXAMIC ACID
     Indication: Haemorrhage
     Dosage: 1 G, TID
     Route: 042
     Dates: start: 20080602, end: 20080618
  21. TRANEXAMIC ACID [Concomitant]
     Active Substance: TRANEXAMIC ACID
     Dosage: UNK
     Route: 065
     Dates: start: 20080602, end: 20080618
  22. TRANEXAMIC ACID [Concomitant]
     Active Substance: TRANEXAMIC ACID
     Dosage: 1 GRAM, TID
     Route: 042
     Dates: start: 20080602
  23. CASPOFUNGIN ACETATE [Concomitant]
     Active Substance: CASPOFUNGIN ACETATE
     Dosage: UNK

REACTIONS (7)
  - Brain oedema [Fatal]
  - Nosocomial infection [Unknown]
  - Death [Fatal]
  - Fungal infection [Unknown]
  - Haemorrhage intracranial [Fatal]
  - Seizure [Unknown]
  - Enterococcal sepsis [Unknown]

NARRATIVE: CASE EVENT DATE: 20080616
